FAERS Safety Report 12594132 (Version 1)
Quarter: 2016Q3

REPORT INFORMATION
  Report Type: Spontaneous
  Country: US (occurrence: US)
  Receive Date: 20160726
  Receipt Date: 20160726
  Transmission Date: 20161109
  Serious: Yes (Hospitalization)
  Sender: FDA-Public Use
  Company Number: US-AUROBINDO-AUR-APL-2016-09443

PATIENT
  Age: 56 Year
  Sex: Female

DRUGS (1)
  1. IBUPROFEN. [Suspect]
     Active Substance: IBUPROFEN
     Indication: HEADACHE
     Dosage: 3200 MG, DAILY
     Route: 065

REACTIONS (11)
  - Tubulointerstitial nephritis [Unknown]
  - Blood lactate dehydrogenase increased [Unknown]
  - Nausea [Unknown]
  - Vomiting [Unknown]
  - Acute kidney injury [Unknown]
  - Evans syndrome [Unknown]
  - Thrombocytopenia [Unknown]
  - Headache [Unknown]
  - Thrombotic thrombocytopenic purpura [Unknown]
  - Abdominal pain [Unknown]
  - Haemolytic anaemia [Unknown]
